FAERS Safety Report 12637353 (Version 1)
Quarter: 2016Q3

REPORT INFORMATION
  Report Type: Spontaneous
  Country: US (occurrence: US)
  Receive Date: 20160809
  Receipt Date: 20160809
  Transmission Date: 20161109
  Serious: No
  Sender: FDA-Public Use
  Company Number: US-BEH-2015057368

PATIENT
  Age: 82 Year
  Sex: Female
  Weight: 53 kg

DRUGS (17)
  1. NORMAL SALINE [Concomitant]
     Active Substance: SODIUM CHLORIDE
  2. CVS VITAMIN D [Concomitant]
     Dosage: SFTGL
  3. NASONEX [Concomitant]
     Active Substance: MOMETASONE FUROATE
     Dosage: SPRAY/PUMP
  4. SODIUM CHLORIDE. [Concomitant]
     Active Substance: SODIUM CHLORIDE
  5. SYNTHROID [Concomitant]
     Active Substance: LEVOTHYROXINE SODIUM
  6. DIOVAN [Concomitant]
     Active Substance: VALSARTAN
  7. SYMBICORT [Concomitant]
     Active Substance: BUDESONIDE\FORMOTEROL FUMARATE DIHYDRATE
     Dosage: 80-4.5 MCG INHALER
  8. MUCINEX [Concomitant]
     Active Substance: GUAIFENESIN
     Dosage: TAB ER 12H
  9. FOSAMAX [Concomitant]
     Active Substance: ALENDRONATE SODIUM
  10. CVS CALCIUM [Concomitant]
  11. PRIVIGEN [Suspect]
     Active Substance: HUMAN IMMUNOGLOBULIN G
     Indication: HYPOGLOBULINAEMIA
     Route: 042
     Dates: start: 20130517
  12. AZITHROMYCIN ANHYDROUS. [Concomitant]
     Active Substance: AZITHROMYCIN ANHYDROUS
  13. ATENOLOL. [Concomitant]
     Active Substance: ATENOLOL
  14. PREDNISONE. [Concomitant]
     Active Substance: PREDNISONE
  15. LOPERAMIDE [Concomitant]
     Active Substance: LOPERAMIDE
  16. EPI-PEN AUTOINJECTOR [Concomitant]
  17. CVS VITAMIN C [Concomitant]

REACTIONS (1)
  - Bronchitis [Unknown]

NARRATIVE: CASE EVENT DATE: 20151106
